FAERS Safety Report 24335241 (Version 1)
Quarter: 2024Q3

REPORT INFORMATION
  Report Type: Spontaneous
  Country: US (occurrence: US)
  Receive Date: 20240918
  Receipt Date: 20240918
  Transmission Date: 20241017
  Serious: No
  Sender: ABBVIE
  Company Number: US-ABBVIE-5917969

PATIENT
  Age: 46 Year
  Sex: Male

DRUGS (1)
  1. HUMIRA [Suspect]
     Active Substance: ADALIMUMAB
     Indication: Colitis ulcerative
     Dosage: EVERY FIRST AND 15TH DAY OF THE MONTH. FORM STRENGTH: 40 MILLIGRAM
     Route: 058
     Dates: start: 2014

REACTIONS (1)
  - Injection site indentation [Recovered/Resolved]

NARRATIVE: CASE EVENT DATE: 20240901
